FAERS Safety Report 10389230 (Version 1)
Quarter: 2014Q3

REPORT INFORMATION
  Report Type: Spontaneous
  Country: DK (occurrence: DK)
  Receive Date: 20140818
  Receipt Date: 20140818
  Transmission Date: 20150326
  Serious: Yes (Hospitalization)
  Sender: FDA-Public Use
  Company Number: PHHY2014DK096958

PATIENT
  Age: 45 Year
  Sex: Female

DRUGS (1)
  1. BIOCLAVID [Suspect]
     Active Substance: AMOXICILLIN\CLAVULANIC ACID
     Indication: GINGIVITIS
     Dosage: 1 DF, TID
     Route: 048
     Dates: start: 20140612, end: 20140614

REACTIONS (7)
  - Oedema [Recovering/Resolving]
  - Pyrexia [Recovering/Resolving]
  - Drug reaction with eosinophilia and systemic symptoms [Recovering/Resolving]
  - Lymph node pain [Recovering/Resolving]
  - Angioedema [Recovering/Resolving]
  - Rash generalised [Recovering/Resolving]
  - Alanine aminotransferase increased [Recovered/Resolved]

NARRATIVE: CASE EVENT DATE: 20140613
